FAERS Safety Report 10850310 (Version 1)
Quarter: 2015Q1

REPORT INFORMATION
  Report Type: Spontaneous
  Country: US (occurrence: US)
  Receive Date: 20150221
  Receipt Date: 20150221
  Transmission Date: 20150721
  Serious: No
  Sender: FDA-Public Use
  Company Number: US-NOVEN-15US013331

PATIENT
  Age: 51 Year
  Sex: Female

DRUGS (5)
  1. PROZAC [Concomitant]
     Active Substance: FLUOXETINE HYDROCHLORIDE
     Indication: PRODUCT USED FOR UNKNOWN INDICATION
  2. CELEBREX [Concomitant]
     Active Substance: CELECOXIB
     Indication: PRODUCT USED FOR UNKNOWN INDICATION
  3. MINIVELLE [Suspect]
     Active Substance: ESTRADIOL
     Indication: HOT FLUSH
     Dosage: 0.05MG, UNK
     Route: 062
     Dates: start: 2012
  4. MUSCLE RELAXER [Concomitant]
     Active Substance: UNSPECIFIED INGREDIENT
     Indication: PRODUCT USED FOR UNKNOWN INDICATION
  5. HYDROCODONE [Concomitant]
     Active Substance: HYDROCODONE
     Indication: ROAD TRAFFIC ACCIDENT

REACTIONS (3)
  - Feeling abnormal [Unknown]
  - Irritability [Unknown]
  - Treatment noncompliance [Unknown]
